FAERS Safety Report 8786602 (Version 1)
Quarter: 2012Q4

REPORT INFORMATION
  Report Type: 
  Country: US (occurrence: US)
  Receive Date: 20120914
  Receipt Date: 20120914
  Transmission Date: 20130627
  Serious: No
  Sender: FDA-Public Use
  Company Number: US-VERTEX PHARMACEUTICAL INC.-AE-2012-011310

PATIENT
  Age: 26 Year
  Sex: Female

DRUGS (3)
  1. INCIVEK [Suspect]
     Indication: HEPATITIS C
     Route: 048
     Dates: start: 201207
  2. PEGASYS [Concomitant]
     Indication: HEPATITIS C
     Dates: start: 201207
  3. RIBAVIRIN [Concomitant]
     Indication: HEPATITIS C
     Dates: start: 201207

REACTIONS (3)
  - Oedema [Unknown]
  - Rash generalised [Unknown]
  - Pruritus [Unknown]
